FAERS Safety Report 7437085-4 (Version None)
Quarter: 2011Q2

REPORT INFORMATION
  Report Type: 
  Country: None (occurrence: None)
  Receive Date: 20110426
  Receipt Date: 20110415
  Transmission Date: 20111010
  Serious: Yes (Other)
  Sender: FDA-Public Use
  Company Number: PHHY2011US32594

PATIENT
  Age: 84 Year
  Sex: Female

DRUGS (13)
  1. GENTEAL [Suspect]
     Indication: DRY EYE
     Dosage: UNK UKN, AS NEEDED DURING DAY TIME
  2. CALCIUM [Concomitant]
     Dosage: UNK UKN, UNK
  3. CRESTOR [Concomitant]
     Dosage: UNK UKN, UNK
  4. LEVOTHYROXINE SODIUM [Concomitant]
     Dosage: UNK UKN, UNK
  5. GENTEAL GEL [Suspect]
     Indication: DRY EYE
     Dosage: UNK UKN, AS NEEDED DURING DAY TIME
  6. CENTRUM [Concomitant]
     Dosage: UNK UKN, UNK
  7. GENTEAL PM LUBRICANT EYE OINTMENT [Suspect]
     Indication: DRY EYE
     Dosage: UNK UKN, AS NEEDED DURING DAY TIME
  8. FISH OIL [Concomitant]
     Dosage: UNK UKN, UNK
  9. ASCORBIC ACID [Concomitant]
     Dosage: UNK UKN, UNK
  10. VITAMIN B6 [Concomitant]
     Dosage: UNK UKN, UNK
  11. VITAMIN-MINERAL COMPOUND TAB [Concomitant]
     Dosage: UNK UKN, BID
  12. NEXIUM [Concomitant]
     Dosage: UNK UKN, UNK
  13. CARDIZEM [Concomitant]
     Dosage: UNK UKN, UNK

REACTIONS (4)
  - VISION BLURRED [None]
  - EYE PAIN [None]
  - BLEPHAROSPASM [None]
  - MACULAR DEGENERATION [None]
